FAERS Safety Report 9394242 (Version 4)
Quarter: 2013Q3

REPORT INFORMATION
  Report Type: Spontaneous
  Country: JP (occurrence: JP)
  Receive Date: 20130711
  Receipt Date: 20130816
  Transmission Date: 20140515
  Serious: Yes (Death, Other)
  Sender: FDA-Public Use
  Company Number: JP-PFIZER INC-2013202415

PATIENT
  Age: 93 Year
  Sex: Female

DRUGS (10)
  1. ZOSYN [Suspect]
     Indication: PNEUMONIA
     Dosage: 6.75 G/DAY
     Route: 041
     Dates: start: 20121103, end: 20121113
  2. CEPHADOL [Concomitant]
     Dosage: 75MG/DAY
     Route: 048
  3. SALOBEL [Concomitant]
     Dosage: 100 MG/DAY
     Route: 048
  4. ADALAT CR [Concomitant]
     Dosage: 20 MG/DAY
     Route: 048
  5. LASIX [Concomitant]
     Dosage: 20 MG/DAY
     Route: 048
  6. ALDACTONE [Concomitant]
     Dosage: 25 MG/DAY
     Route: 048
  7. MAINTATE [Concomitant]
     Dosage: 5 MG/DAY
     Route: 048
  8. FERROMIA [Concomitant]
     Dosage: 50 MG/DAY
     Route: 048
  9. MYSLEE [Concomitant]
     Dosage: 5 MG/DAY
     Route: 048
  10. BERIZYM [Concomitant]
     Dosage: 3 G/DAY
     Route: 048

REACTIONS (2)
  - Pseudomembranous colitis [Fatal]
  - Portal venous gas [Fatal]
